FAERS Safety Report 12776213 (Version 1)
Quarter: 2016Q3

REPORT INFORMATION
  Report Type: Spontaneous
  Country: US (occurrence: US)
  Receive Date: 20160923
  Receipt Date: 20160923
  Transmission Date: 20161109
  Serious: Yes (Death, Hospitalization, Other)
  Sender: FDA-Public Use
  Company Number: US-BRISTOL-MYERS SQUIBB COMPANY-BMS-2016-077482

PATIENT
  Sex: Male
  Weight: 87.1 kg

DRUGS (24)
  1. OPDIVO [Suspect]
     Active Substance: NIVOLUMAB
     Indication: PRODUCT USED FOR UNKNOWN INDICATION
     Dosage: UNK, Q2WK
     Route: 065
     Dates: start: 20160229, end: 20160523
  2. FINASTERIDE. [Concomitant]
     Active Substance: FINASTERIDE
     Indication: PRODUCT USED FOR UNKNOWN INDICATION
     Dosage: 5 MG, UNK
     Route: 065
  3. RAPAFLO [Concomitant]
     Active Substance: SILODOSIN
     Indication: PRODUCT USED FOR UNKNOWN INDICATION
     Dosage: 8 MG, UNK
     Route: 065
  4. TYLENOL WITH CODEINE [Concomitant]
     Active Substance: ACETAMINOPHEN\CODEINE PHOSPHATE
     Indication: PRODUCT USED FOR UNKNOWN INDICATION
     Route: 065
  5. AMLODIPINE [Concomitant]
     Active Substance: AMLODIPINE BESYLATE
     Indication: PRODUCT USED FOR UNKNOWN INDICATION
     Dosage: 5 MG, UNK
     Route: 065
  6. OXYCODONE [Concomitant]
     Active Substance: OXYCODONE
     Indication: PRODUCT USED FOR UNKNOWN INDICATION
     Dosage: 5 MG, UNK
     Route: 065
  7. JAKAFI [Suspect]
     Active Substance: RUXOLITINIB
     Indication: MYELOFIBROSIS
     Dosage: 10 MG, UNK
     Route: 048
     Dates: start: 20130424
  8. ENALAPRIL MALEATE. [Concomitant]
     Active Substance: ENALAPRIL MALEATE
     Indication: PRODUCT USED FOR UNKNOWN INDICATION
     Dosage: 20 MG, UNK
     Route: 065
  9. SINGULAIR [Concomitant]
     Active Substance: MONTELUKAST SODIUM
     Indication: PRODUCT USED FOR UNKNOWN INDICATION
     Dosage: 10 MG, UNK
     Route: 065
  10. XANAX [Concomitant]
     Active Substance: ALPRAZOLAM
     Indication: PRODUCT USED FOR UNKNOWN INDICATION
     Dosage: 0.5 MG, UNK
     Route: 065
  11. ZOLOFT [Concomitant]
     Active Substance: SERTRALINE HYDROCHLORIDE
     Indication: PRODUCT USED FOR UNKNOWN INDICATION
     Dosage: 50 MG, UNK
     Route: 065
  12. JAKAFI [Suspect]
     Active Substance: RUXOLITINIB
     Dosage: 10 MG, UNK
     Route: 048
     Dates: start: 20130424
  13. PROCRIT [Concomitant]
     Active Substance: ERYTHROPOIETIN
     Indication: PRODUCT USED FOR UNKNOWN INDICATION
     Dosage: UNK
     Route: 065
     Dates: start: 20151130
  14. NASONEX [Concomitant]
     Active Substance: MOMETASONE FUROATE
     Indication: PRODUCT USED FOR UNKNOWN INDICATION
     Route: 065
  15. AMOXICILLIN. [Concomitant]
     Active Substance: AMOXICILLIN
     Indication: PRODUCT USED FOR UNKNOWN INDICATION
     Dosage: 250 MG, UNK
     Route: 065
  16. FISH OIL [Concomitant]
     Active Substance: FISH OIL
     Indication: PRODUCT USED FOR UNKNOWN INDICATION
     Route: 065
  17. MARINOL                            /00003301/ [Concomitant]
     Indication: PRODUCT USED FOR UNKNOWN INDICATION
     Dosage: 5 MG, UNK
     Route: 065
  18. SYMBICORT [Concomitant]
     Active Substance: BUDESONIDE\FORMOTEROL FUMARATE DIHYDRATE
     Indication: PRODUCT USED FOR UNKNOWN INDICATION
     Route: 055
  19. MUCINEX [Concomitant]
     Active Substance: GUAIFENESIN
     Indication: PRODUCT USED FOR UNKNOWN INDICATION
     Route: 065
  20. MITOMYCIN. [Concomitant]
     Active Substance: MITOMYCIN
     Indication: PRODUCT USED FOR UNKNOWN INDICATION
     Route: 065
  21. ZOFRAN [Concomitant]
     Active Substance: ONDANSETRON HYDROCHLORIDE
     Indication: PRODUCT USED FOR UNKNOWN INDICATION
     Dosage: 4 MG, UNK
     Route: 065
  22. MULTIVITAMIN                       /00097801/ [Concomitant]
     Active Substance: VITAMINS
     Indication: PRODUCT USED FOR UNKNOWN INDICATION
     Route: 065
  23. ASPIRIN                            /00002701/ [Concomitant]
     Active Substance: ASPIRIN
     Indication: PRODUCT USED FOR UNKNOWN INDICATION
     Route: 065
  24. MEGACE ES [Concomitant]
     Active Substance: MEGESTROL ACETATE
     Indication: PRODUCT USED FOR UNKNOWN INDICATION
     Route: 065

REACTIONS (29)
  - Epistaxis [Unknown]
  - Hyperkalaemia [Unknown]
  - Fatigue [Unknown]
  - Nausea [Recovering/Resolving]
  - Renal cancer [Unknown]
  - Hypertension [Unknown]
  - Hypoaesthesia [Unknown]
  - Bladder cancer [Unknown]
  - Thrombocytosis [Recovering/Resolving]
  - Palpitations [Unknown]
  - Nocturia [Unknown]
  - Hepatosplenomegaly [Unknown]
  - Myelofibrosis [Unknown]
  - Leukocytosis [Recovering/Resolving]
  - Asthenia [Unknown]
  - Decreased appetite [Unknown]
  - Dyspnoea exertional [Unknown]
  - Polyuria [Unknown]
  - Adverse event [Recovering/Resolving]
  - Weight decreased [Unknown]
  - Ureteric cancer [Unknown]
  - Transient ischaemic attack [Unknown]
  - Metastases to lung [Recovering/Resolving]
  - Arthralgia [Unknown]
  - Paraesthesia [Unknown]
  - Transitional cell cancer of renal pelvis and ureter metastatic [Fatal]
  - Anaemia [Recovering/Resolving]
  - Abdominal discomfort [Recovering/Resolving]
  - Musculoskeletal pain [Unknown]
